FAERS Safety Report 5594731-8 (Version None)
Quarter: 2008Q1

REPORT INFORMATION
  Report Type: 
  Country: None (occurrence: None)
  Receive Date: 20080117
  Receipt Date: 20080116
  Transmission Date: 20080703
  Serious: Yes (Hospitalization)
  Sender: FDA-Public Use
  Company Number: A0703438A

PATIENT
  Age: 41 Year
  Sex: Female

DRUGS (3)
  1. ALLI [Suspect]
     Route: 048
     Dates: start: 20071201, end: 20071231
  2. SLEEPING MEDICATION [Suspect]
     Route: 048
  3. MULTI-VITAMIN [Concomitant]

REACTIONS (9)
  - DIZZINESS [None]
  - FEAR [None]
  - FEELING JITTERY [None]
  - INTENTIONAL OVERDOSE [None]
  - LOSS OF CONSCIOUSNESS [None]
  - SUICIDAL IDEATION [None]
  - SUICIDE ATTEMPT [None]
  - TREMOR [None]
  - WITHDRAWAL SYNDROME [None]
